FAERS Safety Report 4777733-0 (Version None)
Quarter: 2005Q3

REPORT INFORMATION
  Report Type: 
  Country: None (occurrence: None)
  Receive Date: 20050921
  Receipt Date: 20050906
  Transmission Date: 20060218
  Serious: No
  Sender: FDA-Public Use
  Company Number: USA0509107588

PATIENT
  Age: 34 Year
  Sex: Female

DRUGS (2)
  1. CYMBALTA [Suspect]
     Dosage: 60 MG
     Dates: start: 20050801
  2. PROVIGIL [Concomitant]

REACTIONS (1)
  - HEPATIC ENZYME INCREASED [None]
